FAERS Safety Report 4999817-4 (Version None)
Quarter: 2006Q2

REPORT INFORMATION
  Report Type: 
  Country: None (occurrence: None)
  Receive Date: 20060510
  Receipt Date: 20060510
  Transmission Date: 20061013
  Serious: Yes (Death)
  Sender: FDA-Public Use
  Company Number: None

PATIENT
  Age: 86 Year
  Sex: Female

DRUGS (9)
  1. BACTRIM DS [Suspect]
     Indication: URINARY TRACT INFECTION
     Dosage: 1 TWICE DAILY PO  SEVERAL DAYS
     Route: 048
  2. HYDRALAZINE HCL [Concomitant]
  3. SYNTHROID [Concomitant]
  4. LASIX [Concomitant]
  5. COREG [Concomitant]
  6. PREDNISONE TAB [Concomitant]
  7. PRILOSEC [Concomitant]
  8. TOPICAL NITROGLYCERINE [Concomitant]
  9. GENAHIST [Concomitant]

REACTIONS (2)
  - STEVENS-JOHNSON SYNDROME [None]
  - TOXIC EPIDERMAL NECROLYSIS [None]
